FAERS Safety Report 5236392-3 (Version None)
Quarter: 2007Q1

REPORT INFORMATION
  Report Type: 
  Country: None (occurrence: None)
  Receive Date: 20070212
  Receipt Date: 20070201
  Transmission Date: 20070707
  Serious: Yes (Other)
  Sender: FDA-Public Use
  Company Number: NO-PFIZER INC-2007009169

PATIENT
  Sex: Male

DRUGS (1)
  1. CARDURA [Suspect]
     Indication: BLOOD PRESSURE MANAGEMENT

REACTIONS (1)
  - CARDIAC FAILURE [None]
